FAERS Safety Report 11226394 (Version 1)
Quarter: 2015Q2

REPORT INFORMATION
  Report Type: Spontaneous
  Country: PT (occurrence: PT)
  Receive Date: 20150629
  Receipt Date: 20150629
  Transmission Date: 20150821
  Serious: Yes (Other)
  Sender: FDA-Public Use
  Company Number: PHHY2015PT075275

PATIENT
  Age: 80 Year
  Sex: Male

DRUGS (1)
  1. AMIODARONE [Suspect]
     Active Substance: AMIODARONE
     Indication: ATRIAL FIBRILLATION
     Route: 065

REACTIONS (5)
  - Pancytopenia [Recovered/Resolved]
  - Hypothermia [Unknown]
  - Anaemia macrocytic [Recovered/Resolved]
  - Pneumonia [Unknown]
  - Hypothyroidism [Recovered/Resolved]
